FAERS Safety Report 7561016-X (Version None)
Quarter: 2011Q2

REPORT INFORMATION
  Report Type: 
  Country: None (occurrence: None)
  Receive Date: 20110621
  Receipt Date: 20110303
  Transmission Date: 20111010
  Serious: No
  Sender: FDA-Public Use
  Company Number: US-ASTRAZENECA-2011SE12256

PATIENT
  Age: 64 Year
  Sex: Female

DRUGS (3)
  1. ACIPHEX [Concomitant]
  2. ATACAND HCT [Suspect]
     Route: 048
  3. NEXIUM [Suspect]
     Route: 048

REACTIONS (3)
  - ABDOMINAL DISCOMFORT [None]
  - DRUG DOSE OMISSION [None]
  - BLOOD PRESSURE INCREASED [None]
